FAERS Safety Report 14758104 (Version 3)
Quarter: 2020Q2

REPORT INFORMATION
  Report Type: Spontaneous
  Country: US (occurrence: US)
  Receive Date: 20180413
  Receipt Date: 20200624
  Transmission Date: 20200713
  Serious: Yes (Hospitalization, Other)
  Sender: FDA-Public Use
  Company Number: US-ASTRAZENECA-2018SE45287

PATIENT
  Age: 17915 Day
  Sex: Male
  Weight: 110.2 kg

DRUGS (32)
  1. VIIBRYD [Concomitant]
     Active Substance: VILAZODONE HYDROCHLORIDE
  2. LEVAQUIN [Concomitant]
     Active Substance: LEVOFLOXACIN
  3. ENOXAPARIN [Concomitant]
     Active Substance: ENOXAPARIN
  4. ONGLYZA [Suspect]
     Active Substance: SAXAGLIPTIN HYDROCHLORIDE
     Indication: DIABETES MELLITUS
     Route: 048
     Dates: start: 2012, end: 2018
  5. AMLODIPINE [Concomitant]
     Active Substance: AMLODIPINE BESYLATE
  6. KOMBIGLYZE XR [Suspect]
     Active Substance: METFORMIN HYDROCHLORIDE\SAXAGLIPTIN HYDROCHLORIDE
     Route: 048
     Dates: start: 2012
  7. ONGLYZA [Suspect]
     Active Substance: SAXAGLIPTIN HYDROCHLORIDE
     Indication: DIABETES MELLITUS
     Route: 048
     Dates: start: 2012
  8. ZETIA [Concomitant]
     Active Substance: EZETIMIBE
  9. ROCEPHIN [Concomitant]
     Active Substance: CEFTRIAXONE SODIUM
  10. CLAFORAN [Concomitant]
     Active Substance: CEFOTAXIME SODIUM
  11. LIPITOR [Concomitant]
     Active Substance: ATORVASTATIN CALCIUM
  12. PRASUGREL. [Concomitant]
     Active Substance: PRASUGREL
  13. ZOFRAN [Concomitant]
     Active Substance: ONDANSETRON HYDROCHLORIDE
  14. HUMALOG [Concomitant]
     Active Substance: INSULIN LISPRO
  15. COREG [Concomitant]
     Active Substance: CARVEDILOL
  16. IMDUR [Concomitant]
     Active Substance: ISOSORBIDE MONONITRATE
  17. DILAUDID [Concomitant]
     Active Substance: HYDROMORPHONE HYDROCHLORIDE
  18. SERTRALINE [Concomitant]
     Active Substance: SERTRALINE HYDROCHLORIDE
  19. ZOLOFT [Concomitant]
     Active Substance: SERTRALINE HYDROCHLORIDE
  20. HEPARIN [Concomitant]
     Active Substance: HEPARIN SODIUM
  21. ONGLYZA [Suspect]
     Active Substance: SAXAGLIPTIN HYDROCHLORIDE
     Indication: DIABETES MELLITUS
     Route: 048
     Dates: start: 20130115
  22. LANTUS [Concomitant]
     Active Substance: INSULIN GLARGINE
  23. GABAPENTIN. [Concomitant]
     Active Substance: GABAPENTIN
  24. PROTONIX [Concomitant]
     Active Substance: PANTOPRAZOLE SODIUM
  25. ASPIRIN. [Concomitant]
     Active Substance: ASPIRIN
  26. NORCO [Concomitant]
     Active Substance: ACETAMINOPHEN\HYDROCODONE BITARTRATE
  27. NORVASC [Concomitant]
     Active Substance: AMLODIPINE BESYLATE
  28. ATIVAN [Concomitant]
     Active Substance: LORAZEPAM
  29. MINOXIDIL. [Concomitant]
     Active Substance: MINOXIDIL
  30. ONGLYZA [Suspect]
     Active Substance: SAXAGLIPTIN HYDROCHLORIDE
     Indication: DIABETES MELLITUS
     Dosage: GENERIC
     Route: 048
  31. VANCOMYCIN [Concomitant]
     Active Substance: VANCOMYCIN
  32. NITROSTAT [Concomitant]
     Active Substance: NITROGLYCERIN

REACTIONS (8)
  - Cardiovascular disorder [Unknown]
  - Acute left ventricular failure [Unknown]
  - Cardiac failure congestive [Unknown]
  - Acute myocardial infarction [Unknown]
  - Cardiac failure [Unknown]
  - Mitral valve incompetence [Unknown]
  - Tricuspid valve incompetence [Unknown]
  - Myocardial infarction [Unknown]

NARRATIVE: CASE EVENT DATE: 20140809
